FAERS Safety Report 9338616 (Version 1)
Quarter: 2013Q2

REPORT INFORMATION
  Report Type: Spontaneous
  Country: FR (occurrence: FR)
  Receive Date: 20130610
  Receipt Date: 20130610
  Transmission Date: 20140414
  Serious: Yes (Hospitalization)
  Sender: FDA-Public Use
  Company Number: PHHY2013FR058112

PATIENT
  Age: 65 Year
  Sex: Female

DRUGS (11)
  1. COTAREG [Suspect]
     Dosage: 1 DF (VALS 160MG, HCTZ 25MG), QD
  2. TAXOTERE [Suspect]
     Indication: BREAST CANCER
     Dosage: UNK UKN, UNK
     Dates: start: 20110328
  3. HERCEPTIN [Suspect]
     Indication: BREAST CANCER
     Dosage: UNK UKN, UNK
     Dates: start: 20110328
  4. EFFERALGAN [Suspect]
     Indication: PAIN
     Dosage: IF NEEDED
     Route: 048
  5. LOPRESSOR [Concomitant]
     Dosage: 200 MG, QD
  6. TAHOR [Concomitant]
     Dosage: 10 MG, QD
  7. RILMENIDINE [Concomitant]
     Dosage: 1 MG, QD
  8. STABLON [Concomitant]
     Dosage: 12.5 MG, TID
  9. SERESTA [Concomitant]
     Dosage: 0.5 DF (50 MG) QD
  10. PRIMPERAN [Concomitant]
     Dosage: 10 MG, PRN
  11. ARANESP [Concomitant]
     Dosage: 150 UG, WEEKLY

REACTIONS (2)
  - Mucosal inflammation [Recovered/Resolved]
  - Neutropenia [Recovered/Resolved]
